FAERS Safety Report 7325468-2 (Version None)
Quarter: 2011Q1

REPORT INFORMATION
  Report Type: 
  Country: None (occurrence: None)
  Receive Date: 20110302
  Receipt Date: 20110222
  Transmission Date: 20110831
  Serious: No
  Sender: FDA-Public Use
  Company Number: US-JNJFOC-20110207776

PATIENT
  Sex: Male
  Weight: 117.94 kg

DRUGS (2)
  1. FENTANYL CITRATE [Suspect]
     Indication: BACK INJURY
     Route: 062
  2. FENTANYL-100 [Suspect]
     Indication: BACK INJURY
     Route: 062

REACTIONS (1)
  - WRONG TECHNIQUE IN DRUG USAGE PROCESS [None]
